FAERS Safety Report 10437150 (Version 1)
Quarter: 2014Q3

REPORT INFORMATION
  Report Type: Spontaneous
  Country: IT (occurrence: IT)
  Receive Date: 20140908
  Receipt Date: 20140908
  Transmission Date: 20150326
  Serious: Yes (Other)
  Sender: FDA-Public Use
  Company Number: IT-TEVA-505843ISR

PATIENT
  Age: 68 Year
  Sex: Male

DRUGS (3)
  1. OXALIPLATINO SUN [Suspect]
     Active Substance: OXALIPLATIN
     Indication: COLON CANCER METASTATIC
     Dosage: 145 MILLIGRAM DAILY;
     Route: 042
     Dates: start: 20140423, end: 20140710
  2. FLUOROURACILE TEVA [Suspect]
     Active Substance: FLUOROURACIL
     Indication: COLON CANCER METASTATIC
     Dosage: 4780 MILLIGRAM DAILY;
     Route: 041
     Dates: start: 20140523, end: 20140710
  3. AVASTIN [Suspect]
     Active Substance: BEVACIZUMAB
     Indication: COLON CANCER METASTATIC
     Dosage: 330 MILLIGRAM DAILY;
     Route: 042
     Dates: start: 20140523, end: 20140710

REACTIONS (1)
  - Febrile neutropenia [Recovering/Resolving]

NARRATIVE: CASE EVENT DATE: 20140710
